FAERS Safety Report 8720568 (Version 3)
Quarter: 2013Q2

REPORT INFORMATION
  Report Type: Report from Study
  Country: US (occurrence: US)
  Receive Date: 20120813
  Receipt Date: 20130522
  Transmission Date: 20140414
  Serious: Yes (Hospitalization)
  Sender: FDA-Public Use
  Company Number: PHEH2012US015531

PATIENT
  Sex: Male

DRUGS (2)
  1. AFINITOR [Suspect]
     Indication: BENIGN NEOPLASM OF ISLETS OF LANGERHANS
     Dosage: 5 MG, QD
     Route: 048
  2. AFINITOR [Suspect]
     Dosage: 2.5 MG, QD
     Route: 048

REACTIONS (7)
  - Abdominal distension [Unknown]
  - Upper airway obstruction [Unknown]
  - Cerebral haemorrhage [Unknown]
  - Speech disorder [Unknown]
  - Thrombosis [Unknown]
  - Pulmonary thrombosis [Unknown]
  - Local swelling [Unknown]
